FAERS Safety Report 16393678 (Version 15)
Quarter: 2021Q1

REPORT INFORMATION
  Report Type: Spontaneous
  Country: US (occurrence: US)
  Receive Date: 20190605
  Receipt Date: 20210211
  Transmission Date: 20210419
  Serious: Yes (Disabling, Other)
  Sender: FDA-Public Use
  Company Number: US-PFIZER INC-2019234421

PATIENT
  Age: 68 Year
  Sex: Female

DRUGS (1)
  1. XELJANZ XR [Suspect]
     Active Substance: TOFACITINIB CITRATE
     Dosage: 11 MG, UNK
     Dates: end: 201912

REACTIONS (8)
  - Crying [Unknown]
  - Fatigue [Unknown]
  - Tremor [Unknown]
  - Pain [Unknown]
  - Condition aggravated [Unknown]
  - Gait inability [Unknown]
  - Hand deformity [Unknown]
  - Musculoskeletal stiffness [Unknown]
